FAERS Safety Report 8820689 (Version 1)
Quarter: 2012Q4

REPORT INFORMATION
  Report Type: 
  Country: ES (occurrence: ES)
  Receive Date: 20121002
  Receipt Date: 20121002
  Transmission Date: 20130627
  Serious: Yes (Other)
  Sender: FDA-Public Use
  Company Number: ES-AMGEN-ESPSP2012060990

PATIENT
  Age: 50 Year
  Sex: Female

DRUGS (4)
  1. PROLIA [Suspect]
     Indication: OSTEOPOROSIS
     Dosage: 60 mg, UNK
     Route: 058
     Dates: start: 20120521
  2. CITALOPRAM [Concomitant]
     Route: 048
  3. LORMETAZEPAM [Concomitant]
  4. NATECAL D COMPRIMIDOS MASTICABLES, 60 COMPRIMIDOS [Concomitant]
     Route: 048

REACTIONS (3)
  - Dysuria [Not Recovered/Not Resolved]
  - Asthenia [Not Recovered/Not Resolved]
  - Weight decreased [Not Recovered/Not Resolved]
